FAERS Safety Report 7994176-7 (Version None)
Quarter: 2011Q4

REPORT INFORMATION
  Report Type: 
  Country: None (occurrence: None)
  Receive Date: 20111220
  Receipt Date: 20111208
  Transmission Date: 20120403
  Serious: Yes (Other)
  Sender: FDA-Public Use
  Company Number: US-ENDO PHARMACEUTICALS INC.-AMIT20110070

PATIENT
  Sex: Female

DRUGS (2)
  1. AMITRIPTYLINE HCL [Suspect]
     Indication: INSOMNIA
  2. AMITRIPTYLINE HCL [Suspect]
     Indication: MUSCLE SPASMS
     Route: 048

REACTIONS (1)
  - SUICIDAL IDEATION [None]
